FAERS Safety Report 9786845 (Version 1)
Quarter: 2013Q4

REPORT INFORMATION
  Report Type: Spontaneous
  Country: US (occurrence: US)
  Receive Date: 20131227
  Receipt Date: 20131227
  Transmission Date: 20140711
  Serious: Yes (Other)
  Sender: FDA-Public Use
  Company Number: US-WATSON-2013-23348

PATIENT
  Age: 47 Year
  Sex: Female

DRUGS (6)
  1. TRIAMCINOLONE ACETONIDE (AMALLC) [Suspect]
     Indication: INTERVERTEBRAL DISC PROTRUSION
     Dosage: 80 MG, 2 INJECTIONS
     Route: 008
  2. RITONAVIR [Interacting]
     Indication: HIV INFECTION
     Dosage: UNK
     Route: 065
  3. DARUNAVIR [Interacting]
     Indication: HIV INFECTION
     Dosage: UNK
     Route: 065
  4. FLUTICASONE W/SALMETEROL [Interacting]
     Indication: ASTHMA
     Dosage: 500?G/50 ?G,UNK
     Route: 055
  5. ABACAVIR [Concomitant]
     Indication: HIV INFECTION
     Dosage: UNK
     Route: 065
  6. LAMIVUDINE [Concomitant]
     Indication: HIV INFECTION
     Dosage: UNK
     Route: 065

REACTIONS (2)
  - Hypercorticoidism [Recovered/Resolved]
  - Potentiating drug interaction [Recovered/Resolved]
